FAERS Safety Report 5298494-5 (Version None)
Quarter: 2007Q2

REPORT INFORMATION
  Report Type: 
  Country: None (occurrence: None)
  Receive Date: 20070409
  Receipt Date: 20070321
  Transmission Date: 20071010
  Serious: Yes (Hospitalization)
  Sender: FDA-Public Use
  Company Number: IMP_2585_2006

PATIENT
  Age: 71 Year
  Sex: Female
  Weight: 77.1115 kg

DRUGS (7)
  1. CLARITIN-D [Suspect]
     Indication: HYPERSENSITIVITY
     Dosage: 1 TAB QDAY PO
     Route: 048
     Dates: start: 20060101, end: 20060101
  2. CLARITIN-D [Suspect]
     Indication: NASAL CONGESTION
     Dosage: 1 TAB QDAY PO
     Route: 048
     Dates: start: 20060101, end: 20060101
  3. CLARITIN-D [Suspect]
     Indication: THROAT IRRITATION
     Dosage: 1 TAB QDAY PO
     Route: 048
     Dates: start: 20060101, end: 20060101
  4. CLARITIN [Suspect]
     Indication: HYPERSENSITIVITY
     Dosage: 1 TAB QDAY
     Dates: start: 20060101, end: 20060101
  5. CLARITIN [Suspect]
     Indication: NASAL CONGESTION
     Dosage: 1 TAB QDAY
     Dates: start: 20060101, end: 20060101
  6. CLARITIN [Suspect]
     Indication: THROAT IRRITATION
     Dosage: 1 TAB QDAY
     Dates: start: 20060101, end: 20060101
  7. ^MANY^ UNSPECIFIED MEDICATIONS [Concomitant]

REACTIONS (2)
  - DYSPNOEA [None]
  - PALPITATIONS [None]
